FAERS Safety Report 26213331 (Version 1)
Quarter: 2025Q4

REPORT INFORMATION
  Report Type: Spontaneous
  Country: US (occurrence: US)
  Receive Date: 20251230
  Receipt Date: 20251230
  Transmission Date: 20260118
  Serious: No
  Sender: SANOFI AVENTIS
  Company Number: US-SA-2025SA387721

PATIENT
  Sex: Female
  Weight: 61.2 kg

DRUGS (21)
  1. DUPIXENT [Suspect]
     Active Substance: DUPILUMAB
     Indication: Dermatitis atopic
     Dosage: 300 MG, QOW
     Route: 058
  2. SYSTANE (HYPROMELLOSE 2910 (4000 MPA.S)) [Concomitant]
     Active Substance: HYPROMELLOSE 2910 (4000 MPA.S)
  3. FLUAD NOS [Concomitant]
     Active Substance: INFLUENZA VIRUS VACCINE
  4. EVENITY [Concomitant]
     Active Substance: ROMOSOZUMAB-AQQG
  5. PROLIA [Concomitant]
     Active Substance: DENOSUMAB
  6. ZETIA [Concomitant]
     Active Substance: EZETIMIBE
  7. ASPIRIN [Concomitant]
     Active Substance: ASPIRIN
  8. DEXLANSOPRAZOLE [Concomitant]
     Active Substance: DEXLANSOPRAZOLE
  9. FAMOTIDINE [Concomitant]
     Active Substance: FAMOTIDINE
  10. ALBUTEROL SULFATE [Concomitant]
     Active Substance: ALBUTEROL SULFATE
  11. AZELASTINE [Concomitant]
     Active Substance: AZELASTINE
  12. ROSUVASTATIN CALCIUM [Concomitant]
     Active Substance: ROSUVASTATIN CALCIUM
  13. DILTIAZEM [Concomitant]
     Active Substance: DILTIAZEM
  14. GABAPENTIN [Concomitant]
     Active Substance: GABAPENTIN
  15. DUTASTERIDE [Concomitant]
     Active Substance: DUTASTERIDE
  16. HYDRALAZINE HCL [Concomitant]
     Active Substance: HYDRALAZINE HYDROCHLORIDE
  17. TACROLIMUS [Concomitant]
     Active Substance: TACROLIMUS
  18. HYDROCORTISONE [Concomitant]
     Active Substance: HYDROCORTISONE
  19. PRIMIDONE [Concomitant]
     Active Substance: PRIMIDONE
  20. VITAMIN B COMPLEX [Concomitant]
     Active Substance: CYANOCOBALAMIN\DEXPANTHENOL\NIACINAMIDE\PYRIDOXINE HYDROCHLORIDE\RIBOFLAVIN 5^-PHOSPHATE SODIUM\THIA
  21. ARMOUR THYROID [Concomitant]
     Active Substance: THYROID, PORCINE

REACTIONS (2)
  - Urticaria [Unknown]
  - Injection site pain [Unknown]
